FAERS Safety Report 5973496-1 (Version None)
Quarter: 2008Q4

REPORT INFORMATION
  Report Type: 
  Country: None (occurrence: None)
  Receive Date: 20081201
  Receipt Date: 20081119
  Transmission Date: 20090506
  Serious: Yes (Hospitalization)
  Sender: FDA-Public Use
  Company Number: US-ELI_LILLY_AND_COMPANY-US200811004925

PATIENT
  Age: 64 Year
  Sex: Male

DRUGS (14)
  1. BYETTA [Suspect]
     Indication: TYPE 2 DIABETES MELLITUS
     Dosage: 5 UG, UNKNOWN
     Route: 058
     Dates: start: 20080801, end: 20080914
  2. BYETTA [Suspect]
     Dosage: 10 UG, UNKNOWN
     Route: 058
     Dates: start: 20080915, end: 20080917
  3. METFORMIN HCL [Concomitant]
     Dosage: 500 MG, UNKNOWN
  4. GLIMEPIRIDE [Concomitant]
     Dosage: 5 MG, 2/D
  5. ACTOS [Concomitant]
     Dosage: 45 MG, UNKNOWN
  6. HYDROCHLOROTHIAZIDE [Concomitant]
     Dosage: 25 MG, UNKNOWN
  7. BENAZEPRIL HYDROCHLORIDE [Concomitant]
     Indication: BLOOD PRESSURE
     Dosage: 20 MG, UNKNOWN
  8. AMLODIPINE [Concomitant]
     Indication: BLOOD PRESSURE
     Dosage: UNK, UNKNOWN
  9. PRILOSEC [Concomitant]
     Dosage: UNK, UNKNOWN
  10. SIMVASTATIN [Concomitant]
     Dosage: UNK, UNKNOWN
  11. SERTRALINE [Concomitant]
     Dosage: 100 MG, UNKNOWN
  12. LUMIGAN [Concomitant]
     Dosage: UNK, UNKNOWN
  13. PRIMIDONE [Concomitant]
     Indication: TREMOR
     Dosage: 250 MG, UNKNOWN
  14. PROVIGIL [Concomitant]
     Dosage: 200 MG, UNKNOWN

REACTIONS (1)
  - PANCREATITIS [None]
